FAERS Safety Report 5819236-8 (Version None)
Quarter: 2008Q3

REPORT INFORMATION
  Report Type: 
  Country: None (occurrence: None)
  Receive Date: 20080721
  Receipt Date: 20080721
  Transmission Date: 20090109
  Serious: Yes (Other)
  Sender: FDA-Public Use
  Company Number: None

PATIENT
  Sex: Female
  Weight: 93.441 kg

DRUGS (1)
  1. LEVAQUIN [Suspect]
     Indication: CELLULITIS
     Dosage: ONE TABLET /500 MG DAILY PO
     Route: 048
     Dates: start: 20080701, end: 20080710

REACTIONS (3)
  - FALL [None]
  - JOINT SPRAIN [None]
  - TENDON RUPTURE [None]
